FAERS Safety Report 13873016 (Version 3)
Quarter: 2017Q4

REPORT INFORMATION
  Report Type: Report from Study
  Country: None (occurrence: US)
  Receive Date: 20170816
  Receipt Date: 20171027
  Transmission Date: 20180320
  Serious: Yes (Hospitalization)
  Sender: FDA-Public Use
  Company Number: US-ABBVIE-17K-163-2072851-00

PATIENT
  Sex: Female
  Weight: 54.93 kg

DRUGS (6)
  1. DICYCLOMIN [Concomitant]
     Indication: COLITIS ULCERATIVE
  2. ZONISAMIDE. [Concomitant]
     Active Substance: ZONISAMIDE
     Indication: SEIZURE
  3. INSULIN [Concomitant]
     Active Substance: INSULIN NOS
     Indication: DIABETES MELLITUS
  4. HUMIRA [Suspect]
     Active Substance: ADALIMUMAB
     Dosage: DAY 15
     Route: 058
     Dates: start: 2017, end: 2017
  5. HUMIRA [Suspect]
     Active Substance: ADALIMUMAB
     Dosage: STARTING DAY 29
     Route: 058
     Dates: start: 2017
  6. HUMIRA [Suspect]
     Active Substance: ADALIMUMAB
     Indication: COLITIS ULCERATIVE
     Dosage: DAY 1
     Route: 058
     Dates: start: 201704, end: 201704

REACTIONS (3)
  - Arthralgia [Not Recovered/Not Resolved]
  - Suicide attempt [Recovered/Resolved]
  - Malaise [Not Recovered/Not Resolved]

NARRATIVE: CASE EVENT DATE: 2017
